FAERS Safety Report 7558837-6 (Version None)
Quarter: 2011Q2

REPORT INFORMATION
  Report Type: 
  Country: None (occurrence: None)
  Receive Date: 20110621
  Receipt Date: 20110614
  Transmission Date: 20111010
  Serious: Yes (Hospitalization)
  Sender: FDA-Public Use
  Company Number: US-ROCHE-783498

PATIENT
  Age: 61 Year
  Sex: Female
  Weight: 123 kg

DRUGS (2)
  1. BEVACIZUMAB [Suspect]
     Indication: GLIOBLASTOMA MULTIFORME
     Dosage: DATE OF LAST DOSE ADMINISTERED: 18 MAY 2011.
     Route: 042
     Dates: start: 20110425
  2. TEMOZOLOMIDE [Suspect]
     Indication: GLIOBLASTOMA MULTIFORME
     Dosage: LAST DOSE ADMINISTERED: 02 JUNE 2011. ON HOLD.
     Route: 048
     Dates: start: 20110425

REACTIONS (2)
  - EMBOLISM [None]
  - ATRIAL FIBRILLATION [None]
